FAERS Safety Report 14499997 (Version 1)
Quarter: 2018Q1

REPORT INFORMATION
  Report Type: Not Available
  Country: US (occurrence: US)
  Receive Date: 20180207
  Receipt Date: 20180207
  Transmission Date: 20180509
  Serious: No
  Sender: FDA-Public Use
  Company Number: US-FOUNDATIONCONSUMERHC-2017-US-013428

PATIENT
  Age: 23 Year
  Sex: Female
  Weight: 58.06 kg

DRUGS (3)
  1. AFTERA [Suspect]
     Active Substance: LEVONORGESTREL
     Dosage: 1 PILL
     Route: 048
     Dates: start: 20171107, end: 20171107
  2. AFTERA [Suspect]
     Active Substance: LEVONORGESTREL
     Dosage: 1 PILL
     Route: 048
     Dates: start: 20171103, end: 20171103
  3. AFTERA [Suspect]
     Active Substance: LEVONORGESTREL
     Dosage: 1 PILL
     Route: 048
     Dates: start: 201710, end: 201710

REACTIONS (4)
  - Dysmenorrhoea [Recovered/Resolved]
  - Menstrual disorder [Recovered/Resolved]
  - Abdominal pain [Recovered/Resolved]
  - Vaginal haemorrhage [Unknown]

NARRATIVE: CASE EVENT DATE: 20171029
